FAERS Safety Report 9489454 (Version 1)
Quarter: 2013Q3

REPORT INFORMATION
  Report Type: Spontaneous
  Country: GB (occurrence: GB)
  Receive Date: 20130829
  Receipt Date: 20130829
  Transmission Date: 20140515
  Serious: Yes (Other)
  Sender: FDA-Public Use
  Company Number: PHHY2013GB091327

PATIENT
  Age: 55 Year
  Sex: Female

DRUGS (1)
  1. VENLAFAXINE [Suspect]
     Indication: FLUSHING

REACTIONS (12)
  - Cerebral vasoconstriction [Recovering/Resolving]
  - Subarachnoid haemorrhage [Recovering/Resolving]
  - Cerebral haemorrhage [Recovering/Resolving]
  - Disorientation [Recovering/Resolving]
  - Leukoencephalopathy [Recovering/Resolving]
  - Somnolence [Recovering/Resolving]
  - Aphasia [Recovering/Resolving]
  - Grand mal convulsion [Recovering/Resolving]
  - Headache [Recovering/Resolving]
  - Hemiparesis [Recovering/Resolving]
  - Hypoaesthesia [Recovering/Resolving]
  - Anterograde amnesia [Recovering/Resolving]
